FAERS Safety Report 13042193 (Version 1)
Quarter: 2016Q4

REPORT INFORMATION
  Report Type: Spontaneous
  Country: IL (occurrence: IL)
  Receive Date: 20161219
  Receipt Date: 20161219
  Transmission Date: 20170207
  Serious: Yes (Death, Life-Threatening, Other)
  Sender: FDA-Public Use
  Company Number: IL-JAZZ-2016-IL-009123

PATIENT
  Age: 17 Year
  Sex: Female

DRUGS (12)
  1. RESPRIM [Concomitant]
     Indication: PRODUCT USED FOR UNKNOWN INDICATION
  2. NORADRENALIN [Concomitant]
     Active Substance: NOREPINEPHRINE\NOREPINEPHRINE BITARTRATE
     Indication: PRODUCT USED FOR UNKNOWN INDICATION
  3. LOPRESSOR [Concomitant]
     Active Substance: METOPROLOL TARTRATE
     Indication: PRODUCT USED FOR UNKNOWN INDICATION
  4. NOREPINEPHRINE [Concomitant]
     Active Substance: NOREPINEPHRINE\NOREPINEPHRINE BITARTRATE
     Indication: PRODUCT USED FOR UNKNOWN INDICATION
  5. TAZOCIN [Concomitant]
     Active Substance: PIPERACILLIN SODIUM\TAZOBACTAM SODIUM
     Indication: PRODUCT USED FOR UNKNOWN INDICATION
  6. ANIDULAFUNGIN [Concomitant]
     Active Substance: ANIDULAFUNGIN
     Indication: PRODUCT USED FOR UNKNOWN INDICATION
  7. LOSEC [Concomitant]
     Active Substance: OMEPRAZOLE
     Indication: PRODUCT USED FOR UNKNOWN INDICATION
  8. DEFITELIO [Suspect]
     Active Substance: DEFIBROTIDE SODIUM
     Indication: VENOOCCLUSIVE DISEASE
     Dosage: 6.25 MG/KG, EVERY 6 HOURS
     Dates: start: 20160505
  9. DOPAMINE [Concomitant]
     Active Substance: DOPAMINE\DOPAMINE HYDROCHLORIDE
     Indication: PRODUCT USED FOR UNKNOWN INDICATION
     Dosage: UNK
  10. TOCILIZUMAB [Concomitant]
     Active Substance: TOCILIZUMAB
     Indication: PRODUCT USED FOR UNKNOWN INDICATION
  11. IMMUNOGLOBULIN [Concomitant]
     Active Substance: HUMAN IMMUNOGLOBULIN G
     Indication: PRODUCT USED FOR UNKNOWN INDICATION
     Route: 042
  12. DEXAMETHASON [Concomitant]
     Active Substance: DEXAMETHASONE
     Indication: PRODUCT USED FOR UNKNOWN INDICATION

REACTIONS (2)
  - Subarachnoid haemorrhage [Unknown]
  - Cerebral haemorrhage [Fatal]

NARRATIVE: CASE EVENT DATE: 20160511
